FAERS Safety Report 4919264-0 (Version None)
Quarter: 2006Q1

REPORT INFORMATION
  Report Type: 
  Country: None (occurrence: None)
  Receive Date: 20060113
  Receipt Date: 20051206
  Transmission Date: 20060701
  Serious: No
  Sender: FDA-Public Use
  Company Number: 2005SP004297

PATIENT
  Age: 59 Year
  Sex: Male

DRUGS (9)
  1. LUNESTA [Suspect]
     Dosage: 3 MG; HS; ORAL
     Route: 048
     Dates: start: 20051101
  2. LANTUS [Concomitant]
  3. ASPIRIN [Concomitant]
  4. CRESTOR [Concomitant]
  5. LEXAPRO [Concomitant]
  6. LEVOXYL [Concomitant]
  7. PLAVIX [Concomitant]
  8. TRICOR [Concomitant]
  9. NEXIUM [Concomitant]

REACTIONS (1)
  - SOMNOLENCE [None]
